FAERS Safety Report 5012310-8 (Version None)
Quarter: 2006Q2

REPORT INFORMATION
  Report Type: 
  Country: None (occurrence: None)
  Receive Date: 20060525
  Receipt Date: 20060525
  Transmission Date: 20061013
  Serious: Yes (Other)
  Sender: FDA-Public Use
  Company Number: None

PATIENT
  Age: 52 Year
  Sex: Female

DRUGS (2)
  1. FOSPHENYTOIN 1500 MG/NS 100 ML TO BE GIVEN OVER 1 HR [Suspect]
     Dosage: 1500 MG IV [ONE TIME DOSE]
     Route: 042
  2. FOSPHENYTOIN 1500 MG/NS 100 ML TO BE GIVEN OVER 1 HR [Suspect]

REACTIONS (1)
  - TINNITUS [None]
